FAERS Safety Report 18517385 (Version 1)
Quarter: 2020Q4

REPORT INFORMATION
  Report Type: Spontaneous
  Country: US (occurrence: US)
  Receive Date: 20201118
  Receipt Date: 20201118
  Transmission Date: 20210114
  Serious: Yes (Death)
  Sender: FDA-Public Use
  Company Number: None

PATIENT
  Age: 38 Year
  Sex: Female

DRUGS (2)
  1. ZIPRASIDONE. [Suspect]
     Active Substance: ZIPRASIDONE
  2. ARIPIPRAZOLE. [Suspect]
     Active Substance: ARIPIPRAZOLE

REACTIONS (6)
  - Hallucination [None]
  - Hypernatraemia [None]
  - Cardio-respiratory arrest [None]
  - Bradycardia [None]
  - Psychotic disorder [None]
  - Tachypnoea [None]

NARRATIVE: CASE EVENT DATE: 20200801
